FAERS Safety Report 8397443-0 (Version None)
Quarter: 2012Q2

REPORT INFORMATION
  Report Type: 
  Country: None (occurrence: None)
  Receive Date: 20120529
  Receipt Date: 20120529
  Transmission Date: 20120825
  Serious: Yes (Life-Threatening, Hospitalization)
  Sender: FDA-Public Use
  Company Number: None

PATIENT
  Age: 52 Year
  Sex: Male
  Weight: 91.173 kg

DRUGS (1)
  1. AZITHROMYCIN [Suspect]
     Indication: PHARYNGITIS
     Dosage: 500 MG DAILY PO : 250 MG DAILY PO
     Route: 048
     Dates: start: 20100105, end: 20100110

REACTIONS (1)
  - VENTRICULAR TACHYCARDIA [None]
